FAERS Safety Report 5304203-3 (Version None)
Quarter: 2007Q2

REPORT INFORMATION
  Report Type: 
  Country: None (occurrence: None)
  Receive Date: 20070423
  Receipt Date: 20070409
  Transmission Date: 20071010
  Serious: Yes (Other)
  Sender: FDA-Public Use
  Company Number: PHEH2007US04766

PATIENT
  Age: 36 Year
  Sex: Female

DRUGS (1)
  1. ZELNORM [Suspect]
     Indication: STOMACH DISCOMFORT
     Dosage: UNK, TID
     Route: 048
     Dates: start: 20070201, end: 20070407

REACTIONS (4)
  - CARDIAC DISORDER [None]
  - CARDIAC VALVE DISEASE [None]
  - CHEST PAIN [None]
  - DYSPNOEA [None]
